FAERS Safety Report 10726097 (Version 1)
Quarter: 2015Q1

REPORT INFORMATION
  Report Type: Spontaneous
  Country: PL (occurrence: None)
  Receive Date: 20150116
  Receipt Date: 20150116
  Transmission Date: 20150721
  Serious: Yes (Other)
  Sender: FDA-Public Use
  Company Number: INT_00618_2015

PATIENT
  Age: 25 Year
  Sex: Male

DRUGS (5)
  1. IFOSFAMIDE. [Suspect]
     Active Substance: IFOSFAMIDE
     Indication: COLORECTAL ADENOCARCINOMA
     Dosage: (DF)
     Dates: end: 2005
  2. 5-FU [Suspect]
     Active Substance: FLUOROURACIL
     Indication: COLORECTAL ADENOCARCINOMA
     Dosage: DF (UNKNOWN UNTIL NOT CONTINUING)
  3. LEUCOVORIN [Suspect]
     Active Substance: LEUCOVORIN
     Indication: COLORECTAL ADENOCARCINOMA
     Dosage: DF (UNKNOWN UNTIL NOT CONTINUING)?
  4. DOXORUBICIN [Suspect]
     Active Substance: DOXORUBICIN
     Indication: COLORECTAL ADENOCARCINOMA
     Dosage: (DF)
     Dates: end: 2005
  5. CISPLATIN (CISPLATIN) (HQ SPECIALTY) [Suspect]
     Active Substance: CISPLATIN
     Indication: COLORECTAL ADENOCARCINOMA
     Dosage: DF (UNKNOWN UNTIL NOT CONTINUING)

REACTIONS (4)
  - Tubulointerstitial nephritis [None]
  - Renal transplant [None]
  - Renal failure [None]
  - Dialysis [None]
